FAERS Safety Report 9374618 (Version 4)
Quarter: 2013Q3

REPORT INFORMATION
  Report Type: Spontaneous
  Country: US (occurrence: US)
  Receive Date: 20130628
  Receipt Date: 20130814
  Transmission Date: 20140515
  Serious: Yes (Other)
  Sender: FDA-Public Use
  Company Number: US-PFIZER INC-2013192677

PATIENT
  Age: 64 Year
  Sex: Female
  Weight: 82.99 kg

DRUGS (5)
  1. LYRICA [Suspect]
     Indication: FIBROMYALGIA
     Dosage: UNK (50 TO 75MG), 1X/DAY
     Route: 048
     Dates: start: 2005
  2. LYRICA [Suspect]
     Dosage: 75 MG,1 QHS (AT EVERY BEDTIME)
     Route: 048
  3. BENICAR [Suspect]
     Indication: PRODUCT USED FOR UNKNOWN INDICATION
     Dosage: 40 MG, 1X/DAY
     Route: 048
  4. BENICAR [Suspect]
     Dosage: 20 MG, 1X/DAY
     Route: 048
  5. BENICAR [Suspect]
     Dosage: UNK

REACTIONS (6)
  - Cardiac disorder [Unknown]
  - Bedridden [Unknown]
  - Hypotonia [Unknown]
  - Blood pressure decreased [Unknown]
  - Gait disturbance [Unknown]
  - Fatigue [Unknown]
